FAERS Safety Report 7820817-0 (Version None)
Quarter: 2011Q4

REPORT INFORMATION
  Report Type: 
  Country: None (occurrence: None)
  Receive Date: 20111018
  Receipt Date: 20111010
  Transmission Date: 20120403
  Serious: Yes (Other)
  Sender: FDA-Public Use
  Company Number: FR-MERCK-1110USA01837

PATIENT
  Age: 72 Year
  Sex: Male

DRUGS (6)
  1. SINEMET [Suspect]
     Indication: PARKINSON'S DISEASE
     Route: 048
  2. RITALIN [Suspect]
     Indication: PARKINSON'S DISEASE
     Route: 048
     Dates: start: 20110330, end: 20110701
  3. VERAPAMIL HYDROCHLORIDE [Concomitant]
     Route: 048
  4. PRAMIPEXOLE DIHYDROCHLORIDE [Suspect]
     Indication: PARKINSON'S DISEASE
     Route: 048
  5. SIMVASTATIN [Concomitant]
     Route: 048
  6. ASPIRIN [Concomitant]
     Route: 048

REACTIONS (2)
  - HYPERSEXUALITY [None]
  - IMPULSE-CONTROL DISORDER [None]
